FAERS Safety Report 5442105-2 (Version None)
Quarter: 2007Q3

REPORT INFORMATION
  Report Type: 
  Country: None (occurrence: None)
  Receive Date: 20070904
  Receipt Date: 20070823
  Transmission Date: 20080115
  Serious: Yes (Other)
  Sender: FDA-Public Use
  Company Number: GB-ROCHE-510729

PATIENT
  Age: 50 Year
  Sex: Male
  Weight: 107 kg

DRUGS (3)
  1. PEGASYS [Suspect]
     Route: 058
     Dates: start: 20070718, end: 20070730
  2. COPEGUS [Suspect]
     Route: 048
     Dates: start: 20070718, end: 20070730
  3. TRAMADOL HCL [Concomitant]
     Indication: PAIN
     Route: 048

REACTIONS (2)
  - BRONCHOSPASM [None]
  - LOWER RESPIRATORY TRACT INFECTION [None]
